FAERS Safety Report 11798064 (Version 1)
Quarter: 2015Q4

REPORT INFORMATION
  Report Type: Spontaneous
  Country: US (occurrence: None)
  Receive Date: 20151202
  Receipt Date: 20151202
  Transmission Date: 20160305
  Serious: No
  Sender: FDA-Public Use
  Company Number: None

PATIENT
  Age: 61 Year
  Sex: Male
  Weight: 81.65 kg

DRUGS (4)
  1. NASAL D [Suspect]
     Active Substance: OXYMETAZOLINE HYDROCHLORIDE
     Dosage: 2-3 SPRAYS ?TWICE DAILY ?INHALATION
     Route: 055
     Dates: start: 20150828, end: 20151129
  2. DAILY VITAMIN [Concomitant]
     Active Substance: VITAMINS
  3. LEVOTHYROXINE. [Concomitant]
     Active Substance: LEVOTHYROXINE
  4. KELP (IODINE) [Concomitant]

REACTIONS (2)
  - Ageusia [None]
  - Anosmia [None]

NARRATIVE: CASE EVENT DATE: 20151129
